FAERS Safety Report 17536937 (Version 4)
Quarter: 2020Q3

REPORT INFORMATION
  Report Type: Report from Study
  Country: BG (occurrence: BG)
  Receive Date: 20200313
  Receipt Date: 20200702
  Transmission Date: 20201102
  Serious: Yes (Hospitalization)
  Sender: FDA-Public Use
  Company Number: BG-AMGEN-BGRNI2020038212

PATIENT
  Age: 76 Year
  Sex: Female
  Weight: 63 kg

DRUGS (5)
  1. IRINOTECAN [Concomitant]
     Active Substance: IRINOTECAN
     Indication: COLORECTAL CANCER METASTATIC
     Dosage: UNK
     Dates: start: 20200115, end: 20200129
  2. PANITUMUMAB [Suspect]
     Active Substance: PANITUMUMAB
     Indication: COLORECTAL CANCER METASTATIC
     Dosage: 300 MILLIGRAM
     Route: 042
     Dates: start: 20190715
  3. 5?FU [FLUOROURACIL] [Concomitant]
     Active Substance: FLUOROURACIL
     Dosage: UNK
     Dates: start: 20200115, end: 20200131
  4. TRITACE [Concomitant]
     Active Substance: RAMIPRIL
     Dosage: 2.5 MILLIGRAM
     Route: 048
     Dates: start: 2004
  5. BENDAFOLIN [Concomitant]
     Dosage: UNK
     Dates: start: 20200115, end: 20200129

REACTIONS (3)
  - Electrolyte imbalance [Recovered/Resolved]
  - Hypomagnesaemia [Recovered/Resolved]
  - Skin toxicity [Recovered/Resolved]

NARRATIVE: CASE EVENT DATE: 20200206
